FAERS Safety Report 11761506 (Version 1)
Quarter: 2015Q4

REPORT INFORMATION
  Report Type: Spontaneous
  Country: US (occurrence: US)
  Receive Date: 20151120
  Receipt Date: 20151120
  Transmission Date: 20160304
  Serious: Yes (Death)
  Sender: FDA-Public Use
  Company Number: US-CELGENE-USA-2015114638

PATIENT
  Age: 72 Year
  Sex: Female

DRUGS (7)
  1. METOPROLOL [Concomitant]
     Active Substance: METOPROLOL
     Indication: PRODUCT USED FOR UNKNOWN INDICATION
     Route: 065
     Dates: start: 20150414
  2. REVLIMID [Suspect]
     Active Substance: LENALIDOMIDE
     Indication: PLASMA CELL MYELOMA
     Dosage: 25 MILLIGRAM
     Route: 048
     Dates: start: 20150912, end: 20151107
  3. CLONAZEPAM. [Concomitant]
     Active Substance: CLONAZEPAM
     Indication: PRODUCT USED FOR UNKNOWN INDICATION
     Dosage: 1/2-1 TAB
     Route: 065
     Dates: start: 20150620
  4. OXYCODONE/APAP [Concomitant]
     Active Substance: ACETAMINOPHEN\OXYCODONE HYDROCHLORIDE
     Indication: PRODUCT USED FOR UNKNOWN INDICATION
     Dosage: 2-3 TABS
     Route: 065
     Dates: start: 20150922
  5. LOSARTAN. [Concomitant]
     Active Substance: LOSARTAN
     Indication: PRODUCT USED FOR UNKNOWN INDICATION
     Dosage: 1/2-1 TAB
     Route: 065
     Dates: start: 20150620
  6. DEXAMETHASONE. [Concomitant]
     Active Substance: DEXAMETHASONE
     Indication: PRODUCT USED FOR UNKNOWN INDICATION
     Dosage: 10 TABS
     Route: 065
     Dates: start: 20150918
  7. PREMPRO [Concomitant]
     Active Substance: ESTROGENS, CONJUGATED\MEDROXYPROGESTERONE ACETATE
     Indication: PRODUCT USED FOR UNKNOWN INDICATION
     Route: 065
     Dates: start: 20150718

REACTIONS (1)
  - Death [Fatal]

NARRATIVE: CASE EVENT DATE: 20151107
